APPROVED DRUG PRODUCT: SEVELAMER CARBONATE
Active Ingredient: SEVELAMER CARBONATE
Strength: 800MG
Dosage Form/Route: TABLET;ORAL
Application: A211915 | Product #001 | TE Code: AB
Applicant: STRIDES PHARMA GLOBAL PTE LTD
Approved: May 9, 2024 | RLD: No | RS: No | Type: RX